FAERS Safety Report 14081529 (Version 2)
Quarter: 2017Q4

REPORT INFORMATION
  Report Type: Spontaneous
  Country: US (occurrence: US)
  Receive Date: 20171013
  Receipt Date: 20171121
  Transmission Date: 20180321
  Serious: Yes (Hospitalization, Other)
  Sender: FDA-Public Use
  Company Number: US-WEST-WARD PHARMACEUTICALS CORP.-US-H14001-17-03904

PATIENT
  Age: 65 Year
  Sex: Male
  Weight: 91.6 kg

DRUGS (10)
  1. METHYLPREDNISOLONE. [Suspect]
     Active Substance: METHYLPREDNISOLONE
     Indication: PRODUCT USED FOR UNKNOWN INDICATION
     Route: 065
     Dates: start: 20160328, end: 20160401
  2. GANCICLOVIR. [Concomitant]
     Active Substance: GANCICLOVIR
     Indication: CYTOMEGALOVIRUS INFECTION
     Route: 065
     Dates: start: 20160329, end: 20160404
  3. PREDNISONE. [Suspect]
     Active Substance: PREDNISONE
     Route: 048
     Dates: start: 20160422, end: 20160424
  4. LANTUS [Concomitant]
     Active Substance: INSULIN GLARGINE
     Indication: CYTOMEGALOVIRUS INFECTION
     Route: 065
     Dates: start: 20160414, end: 20160415
  5. PREDNISONE. [Suspect]
     Active Substance: PREDNISONE
     Route: 048
     Dates: start: 20160407, end: 20160411
  6. PREDNISONE. [Suspect]
     Active Substance: PREDNISONE
     Route: 048
     Dates: start: 20160402, end: 20160406
  7. PREDNISONE. [Suspect]
     Active Substance: PREDNISONE
     Route: 048
     Dates: start: 20160417, end: 20160421
  8. INCB39110 [Suspect]
     Active Substance: ITACITINIB
     Indication: ACUTE GRAFT VERSUS HOST DISEASE
     Route: 048
     Dates: start: 20160328
  9. PREDNISONE. [Suspect]
     Active Substance: PREDNISONE
     Indication: ACUTE GRAFT VERSUS HOST DISEASE
     Route: 048
     Dates: start: 20160402, end: 20160402
  10. PREDNISONE. [Suspect]
     Active Substance: PREDNISONE
     Route: 048
     Dates: start: 20160412, end: 20160416

REACTIONS (7)
  - Diarrhoea [Unknown]
  - Condition aggravated [Recovering/Resolving]
  - Asthenia [Unknown]
  - Myopathy [Recovering/Resolving]
  - Hyperglycaemia [Unknown]
  - Failure to thrive [Unknown]
  - Fatigue [Unknown]
